FAERS Safety Report 5951502-8 (Version None)
Quarter: 2008Q4

REPORT INFORMATION
  Report Type: 
  Country: None (occurrence: None)
  Receive Date: 20081113
  Receipt Date: 20081106
  Transmission Date: 20090506
  Serious: Yes (Hospitalization)
  Sender: FDA-Public Use
  Company Number: US-WYE-H06785608

PATIENT
  Age: 56 Year
  Sex: Female

DRUGS (1)
  1. CHAPSTICK LIP BALM [Suspect]
     Indication: LIP DRY
     Dosage: UNKNOWN
     Route: 061
     Dates: end: 20081001

REACTIONS (1)
  - PNEUMONIA LIPOID [None]
